FAERS Safety Report 12175942 (Version 1)
Quarter: 2016Q1

REPORT INFORMATION
  Report Type: Spontaneous
  Country: FR (occurrence: FR)
  Receive Date: 20160314
  Receipt Date: 20160314
  Transmission Date: 20160526
  Serious: Yes (Hospitalization)
  Sender: FDA-Public Use
  Company Number: FR-TEVA-642783ISR

PATIENT
  Age: 23 Year
  Sex: Male

DRUGS (3)
  1. DOXORUBICINE TEVA 200 MG/100 ML [Suspect]
     Active Substance: DOXORUBICIN
     Indication: OSTEOSARCOMA
     Dosage: 104 MILLIGRAM DAILY;
     Route: 041
     Dates: start: 20160212, end: 20160212
  2. IFOSFAMIDE EG 40 MG/ML [Suspect]
     Active Substance: IFOSFAMIDE
     Indication: OSTEOSARCOMA
     Dosage: 8.6 GRAM DAILY;
     Route: 041
     Dates: start: 20160212, end: 20160213
  3. MESNA EG 100 MG/ML [Concomitant]

REACTIONS (1)
  - Encephalopathy [Recovered/Resolved]

NARRATIVE: CASE EVENT DATE: 20160213
